FAERS Safety Report 10866286 (Version 2)
Quarter: 2015Q1

REPORT INFORMATION
  Report Type: Spontaneous
  Country: US (occurrence: US)
  Receive Date: 20150225
  Receipt Date: 20150319
  Transmission Date: 20150721
  Serious: Yes (Other)
  Sender: FDA-Public Use
  Company Number: US-009507513-1502USA010117

PATIENT
  Age: 49 Year
  Sex: Male

DRUGS (5)
  1. VICTRELIS [Suspect]
     Active Substance: BOCEPREVIR
     Indication: CHRONIC HEPATITIS C
     Dosage: 200 MG, TID
     Route: 048
     Dates: start: 20130914, end: 20131205
  2. REBETOL [Suspect]
     Active Substance: RIBAVIRIN
     Indication: CHRONIC HEPATITIS C
     Dosage: 600 MG, BID
     Route: 048
     Dates: start: 20131215, end: 20140228
  3. PEGASYS [Suspect]
     Active Substance: PEGINTERFERON ALFA-2A
     Indication: HEPATITIS C
     Dosage: UNK, STRENGTH, DOSE ARE UNKNOWN
     Route: 058
     Dates: start: 20130816, end: 20140228
  4. VICTRELIS [Suspect]
     Active Substance: BOCEPREVIR
     Dosage: 200 MG, TID
     Route: 048
     Dates: start: 20131215, end: 20140228
  5. OLYSIO [Suspect]
     Active Substance: SIMEPREVIR

REACTIONS (1)
  - Drug ineffective [Unknown]

NARRATIVE: CASE EVENT DATE: 20140709
